FAERS Safety Report 16689395 (Version 1)
Quarter: 2019Q3

REPORT INFORMATION
  Report Type: Spontaneous
  Country: FR (occurrence: FR)
  Receive Date: 20190809
  Receipt Date: 20190809
  Transmission Date: 20191004
  Serious: Yes (Life-Threatening, Hospitalization, Other)
  Sender: FDA-Public Use
  Company Number: FR-PURDUE PHARMA-GBR-2019-0068859

PATIENT
  Age: 1 Month
  Sex: Male

DRUGS (1)
  1. NON-PMN MORPHINE SULFATE [Suspect]
     Active Substance: MORPHINE SULFATE
     Indication: FOETAL EXPOSURE DURING PREGNANCY
     Dosage: STRENGTH 0.1MG/ML
     Route: 048

REACTIONS (5)
  - Cyanosis [Unknown]
  - Dizziness [Unknown]
  - Miosis [Unknown]
  - Overdose [Unknown]
  - Respiratory failure [Unknown]
